FAERS Safety Report 6372244-3 (Version None)
Quarter: 2009Q3

REPORT INFORMATION
  Report Type: 
  Country: None (occurrence: None)
  Receive Date: 20090924
  Receipt Date: 20090914
  Transmission Date: 20100115
  Serious: Yes (Hospitalization)
  Sender: FDA-Public Use
  Company Number: US-BIOGENIDEC-2008BI034588

PATIENT
  Sex: Female

DRUGS (2)
  1. AVONEX [Suspect]
     Indication: MULTIPLE SCLEROSIS
     Route: 030
  2. AVONEX [Suspect]
     Route: 030
     Dates: start: 20000324

REACTIONS (8)
  - ASTHENIA [None]
  - BALANCE DISORDER [None]
  - COUGH [None]
  - DISORIENTATION [None]
  - DYSARTHRIA [None]
  - FAECAL INCONTINENCE [None]
  - HALLUCINATION [None]
  - ROAD TRAFFIC ACCIDENT [None]
